FAERS Safety Report 9821168 (Version 1)
Quarter: 2014Q1

REPORT INFORMATION
  Report Type: Spontaneous
  Country: US (occurrence: US)
  Receive Date: 20140116
  Receipt Date: 20140116
  Transmission Date: 20141002
  Serious: Yes (Disabling, Other)
  Sender: FDA-Public Use
  Company Number: PHEH2014US001054

PATIENT
  Age: 58 Year
  Sex: Male

DRUGS (10)
  1. MYFORTIC [Suspect]
     Indication: RENAL TRANSPLANT
     Dosage: UNK
     Dates: start: 2001
  2. AGGRENOX [Concomitant]
     Dosage: UNK
  3. COREG [Concomitant]
     Dosage: UNK
  4. NORVASC [Concomitant]
     Dosage: UNK
  5. LORATADINE [Concomitant]
     Dosage: UNK
  6. OXYCONTIN [Concomitant]
     Dosage: UNK
  7. ZOLOFT [Concomitant]
     Dosage: UNK
  8. ENABLEX [Concomitant]
     Dosage: UNK
  9. HUMALOG [Concomitant]
     Dosage: UNK
  10. LANTUS [Concomitant]

REACTIONS (2)
  - Back injury [Unknown]
  - Fall [Unknown]
